FAERS Safety Report 5187937-3 (Version None)
Quarter: 2006Q4

REPORT INFORMATION
  Report Type: 
  Country: None (occurrence: None)
  Receive Date: 20061221
  Receipt Date: 20061208
  Transmission Date: 20070319
  Serious: Yes (Hospitalization)
  Sender: FDA-Public Use
  Company Number: CH-BAYER-200616246GDS

PATIENT
  Age: 78 Year
  Sex: Female

DRUGS (8)
  1. ASPIRIN [Suspect]
     Indication: CEREBROVASCULAR ACCIDENT
     Route: 048
     Dates: start: 20061029
  2. EPANUTIN [Suspect]
     Indication: EPILEPSY
     Route: 048
     Dates: start: 20060923, end: 20061105
  3. ALDOZONE (SPIRONOLACTONE/BUTIZIDE) [Suspect]
     Indication: HYPERTENSION
     Route: 048
     Dates: start: 20061012, end: 20061106
  4. PRAVASTATIN [Concomitant]
     Indication: DRUG USE FOR UNKNOWN INDICATION
     Route: 048
     Dates: start: 20061029, end: 20061106
  5. SINTROM [Concomitant]
     Indication: CARDIAC SEPTAL DEFECT
     Route: 048
     Dates: start: 20061030
  6. NORVASC [Concomitant]
     Indication: HYPERTENSION
     Route: 048
     Dates: start: 20060923, end: 20061106
  7. BELOC-ZOK [Concomitant]
     Indication: HYPERTENSION
     Route: 048
     Dates: start: 20060927, end: 20061106
  8. CO-APROVEL HCTZ/IRBESARTAN [Concomitant]
     Indication: HYPERTENSION
     Route: 048
     Dates: start: 20061012, end: 20061106

REACTIONS (5)
  - DRUG ERUPTION [None]
  - EOSINOPHILIA [None]
  - ERYTHEMA [None]
  - HYPERSENSITIVITY [None]
  - PYREXIA [None]
